FAERS Safety Report 8301226-7 (Version None)
Quarter: 2012Q2

REPORT INFORMATION
  Report Type: 
  Country: None (occurrence: None)
  Receive Date: 20120420
  Receipt Date: 20120420
  Transmission Date: 20120825
  Serious: Yes (Other)
  Sender: FDA-Public Use
  Company Number: None

PATIENT
  Age: 48 Year
  Sex: Female
  Weight: 63.502 kg

DRUGS (1)
  1. LEVOFLOXACIN [Suspect]
     Indication: SINUSITIS
     Dosage: ONE TABLET
     Route: 048
     Dates: start: 20120228, end: 20120301

REACTIONS (5)
  - ARTHRALGIA [None]
  - MUSCULOSKELETAL PAIN [None]
  - HYPOAESTHESIA [None]
  - PAIN [None]
  - PAIN IN EXTREMITY [None]
